FAERS Safety Report 15575115 (Version 3)
Quarter: 2018Q4

REPORT INFORMATION
  Report Type: Report from Study
  Country: HU (occurrence: HU)
  Receive Date: 20181101
  Receipt Date: 20181113
  Transmission Date: 20190205
  Serious: Yes (Life-Threatening, Other)
  Sender: FDA-Public Use
  Company Number: HU-PFIZER INC-2018446335

PATIENT
  Sex: Female

DRUGS (10)
  1. FLUOXETINE HYDROCHLORIDE. [Concomitant]
     Active Substance: FLUOXETINE HYDROCHLORIDE
     Dosage: 20 MG, 1X/DAY
     Route: 065
  2. TEGRETOL XR [Suspect]
     Active Substance: CARBAMAZEPINE
     Dosage: 0.5 DF, DAILY
     Route: 065
  3. GALVUS [Suspect]
     Active Substance: VILDAGLIPTIN
     Indication: HYPOMETABOLISM
     Dosage: 50 MG, 1X/DAY
     Route: 065
     Dates: start: 20180920
  4. NEBIVOLOL. [Suspect]
     Active Substance: NEBIVOLOL
     Dosage: 1 DF, DAILY
     Route: 065
  5. GALVUS [Suspect]
     Active Substance: VILDAGLIPTIN
     Indication: DIABETES MELLITUS
  6. MERCKFORMIN [Concomitant]
     Active Substance: METFORMIN HYDROCHLORIDE
     Dosage: 750 MG, 1X/DAY
     Route: 065
  7. PANTOPRAZOLE [Suspect]
     Active Substance: PANTOPRAZOLE
     Dosage: 40 MG, QD
     Route: 065
  8. RIVOTRIL [Concomitant]
     Active Substance: CLONAZEPAM
     Dosage: 2 MG, 1X/DAY
     Route: 065
  9. EUTHYROX [Concomitant]
     Active Substance: LEVOTHYROXINE SODIUM
     Dosage: 100 UG, 1X/DAY
     Route: 065
  10. TELMISARTAN RATIOPHARM [Concomitant]
     Dosage: 40 MG, 1X/DAY
     Route: 065

REACTIONS (11)
  - Musculoskeletal stiffness [Unknown]
  - Diabetes mellitus [Recovered/Resolved]
  - Haematoma [Recovered/Resolved]
  - Intervertebral disc protrusion [Recovered/Resolved]
  - Depression [Recovered/Resolved]
  - Peripheral swelling [Recovered/Resolved]
  - Vein rupture [Recovered/Resolved]
  - Pain in extremity [Recovered/Resolved]
  - Hypertension [Recovered/Resolved]
  - Suicide attempt [Recovered/Resolved]
  - Hypometabolism [Recovered/Resolved]

NARRATIVE: CASE EVENT DATE: 2010
